FAERS Safety Report 8200935 (Version 4)
Quarter: 2016Q1

REPORT INFORMATION
  Report Type: Spontaneous
  Country: DE (occurrence: DE)
  Receive Date: 20111026
  Receipt Date: 20160201
  Transmission Date: 20160526
  Serious: Yes (Hospitalization, Other)
  Sender: FDA-Public Use
  Company Number: DE-PFIZER INC-2011254525

PATIENT
  Sex: Female
  Weight: 3.31 kg

DRUGS (2)
  1. SERTRALINE HCL [Suspect]
     Active Substance: SERTRALINE HYDROCHLORIDE
     Indication: DEPRESSION
     Dosage: 100 MG, 1X/DAY
     Route: 064
  2. FOLINIC ACID [Concomitant]
     Active Substance: LEUCOVORIN
     Indication: PROPHYLAXIS OF NEURAL TUBE DEFECT
     Dosage: FROM 11. TO 12. GESTATIONAL WEEK
     Route: 064

REACTIONS (6)
  - Maternal exposure timing unspecified [Recovering/Resolving]
  - Agitation neonatal [Recovered/Resolved]
  - Cyanosis neonatal [Recovered/Resolved]
  - Haematoma [Recovered/Resolved]
  - Gross motor delay [Recovering/Resolving]
  - Spinal disorder [Recovering/Resolving]

NARRATIVE: CASE EVENT DATE: 2009
